FAERS Safety Report 19258899 (Version 1)
Quarter: 2021Q2

REPORT INFORMATION
  Report Type: Spontaneous
  Country: US (occurrence: US)
  Receive Date: 20210514
  Receipt Date: 20210514
  Transmission Date: 20210717
  Serious: Yes (Hospitalization)
  Sender: FDA-Public Use
  Company Number: None

PATIENT
  Sex: Female

DRUGS (4)
  1. HUMIRA [Suspect]
     Active Substance: ADALIMUMAB
     Indication: RHEUMATOID ARTHRITIS
     Dosage: ?          OTHER FREQUENCY:EVERY 7 DAYS;?
     Route: 058
     Dates: start: 20201117
  2. BD NESTABLE [Concomitant]
  3. ENBREL [Concomitant]
     Active Substance: ETANERCEPT
  4. SIMPONI [Concomitant]
     Active Substance: GOLIMUMAB

REACTIONS (3)
  - Fatigue [None]
  - Surgery [None]
  - Therapy interrupted [None]
